FAERS Safety Report 8367022-X (Version None)
Quarter: 2012Q2

REPORT INFORMATION
  Report Type: 
  Country: None (occurrence: None)
  Receive Date: 20120517
  Receipt Date: 20120514
  Transmission Date: 20120825
  Serious: Yes (Hospitalization, Other)
  Sender: FDA-Public Use
  Company Number: US-AMGEN-USASP2012030130

PATIENT
  Age: 40 Year
  Sex: Female

DRUGS (1)
  1. NPLATE [Suspect]
     Indication: IDIOPATHIC THROMBOCYTOPENIC PURPURA
     Dosage: UNK
     Dates: start: 20070101

REACTIONS (8)
  - INTRACRANIAL PRESSURE INCREASED [None]
  - HEADACHE [None]
  - THROMBOCYTOSIS [None]
  - HAEMORRHAGE [None]
  - THROMBOCYTOPENIA [None]
  - VISION BLURRED [None]
  - CEREBRAL VENOUS THROMBOSIS [None]
  - BRAIN OEDEMA [None]
